FAERS Safety Report 23145125 (Version 2)
Quarter: 2023Q4

REPORT INFORMATION
  Report Type: Spontaneous
  Country: FR (occurrence: FR)
  Receive Date: 20231103
  Receipt Date: 20231127
  Transmission Date: 20240110
  Serious: Yes (Other)
  Sender: FDA-Public Use
  Company Number: None

PATIENT
  Age: 20 Year
  Sex: Female

DRUGS (15)
  1. NIVOLUMAB [Suspect]
     Active Substance: NIVOLUMAB
     Indication: Hodgkin^s disease stage IV
     Route: 042
     Dates: start: 20230215, end: 20230420
  2. PREDNISONE [Suspect]
     Active Substance: PREDNISONE
     Indication: Hodgkin^s disease stage IV
     Dosage: SEPTEMBER AND NOVEMBER 2022: 2 COURSES AND DECEMBER 2022 ONE COURSE
     Route: 048
     Dates: start: 202209, end: 202212
  3. BRENTUXIMAB VEDOTIN [Suspect]
     Active Substance: BRENTUXIMAB VEDOTIN
     Indication: Hodgkin^s disease stage IV
     Route: 042
     Dates: start: 20230215, end: 20230420
  4. DACARBAZINE [Concomitant]
     Active Substance: DACARBAZINE
     Indication: Hodgkin^s disease stage IV
     Route: 042
     Dates: start: 20221205, end: 20221208
  5. ETOPOSIDE [Concomitant]
     Active Substance: ETOPOSIDE
     Indication: Hodgkin^s disease stage IV
     Route: 042
     Dates: start: 202209, end: 202211
  6. ETOPOSIDE [Concomitant]
     Active Substance: ETOPOSIDE
     Route: 042
     Dates: start: 20230601
  7. ONCOVIN [Concomitant]
     Active Substance: VINCRISTINE SULFATE
     Indication: Hodgkin^s disease stage IV
     Route: 042
     Dates: start: 202209, end: 202211
  8. CARMUSTINE [Concomitant]
     Active Substance: CARMUSTINE
     Indication: Hodgkin^s disease stage IV
     Route: 042
     Dates: start: 20220602, end: 20220602
  9. CARMUSTINE [Concomitant]
     Active Substance: CARMUSTINE
     Route: 042
     Dates: start: 20230601
  10. MELPHALAN [Concomitant]
     Active Substance: MELPHALAN
     Indication: Hodgkin^s disease stage IV
     Route: 042
     Dates: start: 20230530, end: 20230530
  11. MELPHALAN [Concomitant]
     Active Substance: MELPHALAN
     Dates: start: 20230601
  12. CYCLOPHOSPHAMIDE [Concomitant]
     Active Substance: CYCLOPHOSPHAMIDE
     Indication: Hodgkin^s disease stage IV
     Route: 042
     Dates: start: 20221205, end: 20221208
  13. CYTARABINE [Concomitant]
     Active Substance: CYTARABINE
     Indication: Hodgkin^s disease stage IV
     Route: 042
     Dates: start: 20230526, end: 20230529
  14. CYTARABINE [Concomitant]
     Active Substance: CYTARABINE
     Route: 042
     Dates: start: 20230601
  15. DOXORUBICIN [Concomitant]
     Active Substance: DOXORUBICIN
     Indication: Hodgkin^s disease stage IV
     Route: 042
     Dates: start: 202209, end: 202211

REACTIONS (2)
  - Osteonecrosis [Not Recovered/Not Resolved]
  - Femur fracture [Not Recovered/Not Resolved]

NARRATIVE: CASE EVENT DATE: 20230606
